FAERS Safety Report 16023179 (Version 6)
Quarter: 2021Q4

REPORT INFORMATION
  Report Type: Spontaneous
  Country: US (occurrence: US)
  Receive Date: 20190301
  Receipt Date: 20211009
  Transmission Date: 20220303
  Serious: Yes (Hospitalization, Other)
  Sender: FDA-Public Use
  Company Number: US-ALEXION-54730

PATIENT
  Age: 3 Year
  Sex: Female
  Weight: 12.9 kg

DRUGS (6)
  1. STRENSIQ [Suspect]
     Active Substance: ASFOTASE ALFA
     Indication: Hypophosphatasia
     Dosage: UNK
     Route: 058
  2. STRENSIQ [Suspect]
     Active Substance: ASFOTASE ALFA
     Dosage: 3 MG/KG, TIW
     Route: 058
     Dates: start: 20190126, end: 20190206
  3. ALBUTEROL [Concomitant]
     Active Substance: ALBUTEROL
     Indication: Product used for unknown indication
     Route: 065
  4. PULMICORT TURBUHALER [Concomitant]
     Active Substance: BUDESONIDE
     Indication: Product used for unknown indication
     Route: 065
  5. ATROVENT [Concomitant]
     Active Substance: IPRATROPIUM BROMIDE
     Indication: Product used for unknown indication
     Route: 065
  6. SINGULAIR [Concomitant]
     Active Substance: MONTELUKAST SODIUM
     Indication: Product used for unknown indication
     Route: 065

REACTIONS (13)
  - Respiratory arrest [Unknown]
  - Pulmonary haemorrhage [Recovered/Resolved]
  - Acute respiratory failure [Unknown]
  - Acute kidney injury [Unknown]
  - Viral myocarditis [Unknown]
  - Urinary tract infection fungal [Unknown]
  - Blood alkaline phosphatase decreased [Not Recovered/Not Resolved]
  - Hypercalcaemia [Recovered/Resolved]
  - Hypoxia [Recovered/Resolved]
  - Cardiac arrest [Recovered/Resolved]
  - Hyperphosphataemia [Recovered/Resolved]
  - Influenza [Unknown]
  - Cardiac disorder [Not Recovered/Not Resolved]

NARRATIVE: CASE EVENT DATE: 20190101
